FAERS Safety Report 5918584-0 (Version None)
Quarter: 2008Q4

REPORT INFORMATION
  Report Type: 
  Country: None (occurrence: None)
  Receive Date: 20081014
  Receipt Date: 20081014
  Transmission Date: 20090506
  Serious: No
  Sender: FDA-Public Use
  Company Number: None

PATIENT
  Age: 38 Year
  Sex: Male
  Weight: 90.7194 kg

DRUGS (8)
  1. LEVITRA [Suspect]
     Indication: ERECTILE DYSFUNCTION
  2. CELLCEPT [Concomitant]
  3. XAYNAX [Concomitant]
  4. PLAQANEIL [Concomitant]
  5. VITIMANS [Concomitant]
  6. TESTOSTERONE [Concomitant]
  7. VITIMAN D [Concomitant]
  8. PREDINSONE [Concomitant]

REACTIONS (3)
  - EYE DISORDER [None]
  - NASAL CONGESTION [None]
  - OCULAR HYPERAEMIA [None]
